FAERS Safety Report 18099041 (Version 2)
Quarter: 2021Q1

REPORT INFORMATION
  Report Type: Spontaneous
  Country: US (occurrence: US)
  Receive Date: 20200731
  Receipt Date: 20210222
  Transmission Date: 20210419
  Serious: No
  Sender: FDA-Public Use
  Company Number: US-TEVA-2020-US-1807884

PATIENT
  Sex: Female

DRUGS (2)
  1. CLONAZEPAM TEVA [Suspect]
     Active Substance: CLONAZEPAM
     Dosage: 1 MG TWICE
     Route: 065
     Dates: start: 2020
  2. CLONAZEPAM TEVA [Suspect]
     Active Substance: CLONAZEPAM
     Dosage: 2 MILLIGRAM DAILY; TWICE
     Route: 065
     Dates: start: 20200725

REACTIONS (15)
  - Headache [Unknown]
  - Gait disturbance [Unknown]
  - Insomnia [Unknown]
  - Asthenia [Unknown]
  - Product formulation issue [Unknown]
  - Diarrhoea [Not Recovered/Not Resolved]
  - Feeling abnormal [Unknown]
  - Expired product administered [Unknown]
  - Wrong technique in product usage process [Unknown]
  - Abdominal discomfort [Not Recovered/Not Resolved]
  - Dysgeusia [Unknown]
  - Pallor [Unknown]
  - Hyperhidrosis [Unknown]
  - Anxiety [Unknown]
  - Nervousness [Unknown]

NARRATIVE: CASE EVENT DATE: 2020
